FAERS Safety Report 9717298 (Version 1)
Quarter: 2013Q4

REPORT INFORMATION
  Report Type: Report from Study
  Country: CA (occurrence: CA)
  Receive Date: 20131127
  Receipt Date: 20131127
  Transmission Date: 20140711
  Serious: Yes (Hospitalization, Other)
  Sender: FDA-Public Use
  Company Number: CA-BAXTER-2013BAX047395

PATIENT
  Sex: 0

DRUGS (1)
  1. FEIBA NF [Suspect]
     Indication: HAEMORRHAGE PROPHYLAXIS
     Route: 065

REACTIONS (2)
  - Drug effect decreased [Recovered/Resolved]
  - Haemorrhagic diathesis [Recovered/Resolved]
